FAERS Safety Report 23585213 (Version 1)
Quarter: 2024Q1

REPORT INFORMATION
  Report Type: Spontaneous
  Country: ES (occurrence: None)
  Receive Date: 20240301
  Receipt Date: 20240301
  Transmission Date: 20240409
  Serious: Yes (Other)
  Sender: FDA-Public Use
  Company Number: 2024A051304

PATIENT
  Age: 35 Year

DRUGS (1)
  1. BENRALIZUMAB [Suspect]
     Active Substance: BENRALIZUMAB
     Route: 058

REACTIONS (4)
  - Cardiac aneurysm [Not Recovered/Not Resolved]
  - Polyp [Unknown]
  - Paraesthesia [Unknown]
  - Off label use [Unknown]
